FAERS Safety Report 15159672 (Version 1)
Quarter: 2018Q3

REPORT INFORMATION
  Report Type: Spontaneous
  Country: US (occurrence: US)
  Receive Date: 20180718
  Receipt Date: 20180718
  Transmission Date: 20181010
  Serious: No
  Sender: FDA-Public Use
  Company Number: US-EISAI MEDICAL RESEARCH-EC-2018-042579

PATIENT
  Sex: Female

DRUGS (2)
  1. FYCOMPA [Suspect]
     Active Substance: PERAMPANEL
     Indication: FRONTAL LOBE EPILEPSY
     Dosage: UNKNOWN
     Route: 048
  2. OXTELLAR [Concomitant]
     Indication: FRONTAL LOBE EPILEPSY
     Dosage: UNKNOWN
     Route: 048

REACTIONS (1)
  - Atonic seizures [Unknown]
